FAERS Safety Report 6170328-6 (Version None)
Quarter: 2009Q2

REPORT INFORMATION
  Report Type: 
  Country: None (occurrence: None)
  Receive Date: 20090427
  Receipt Date: 20090427
  Transmission Date: 20091009
  Serious: Yes (Death)
  Sender: FDA-Public Use
  Company Number: None

PATIENT
  Age: 66 Year
  Sex: Female
  Weight: 77.1115 kg

DRUGS (4)
  1. DIGOXIN [Suspect]
     Dosage: 1 TAB DAILY MOUTH
     Route: 048
     Dates: start: 20070301, end: 20081001
  2. CARDIZEM [Concomitant]
  3. NITROGLYCERIN [Concomitant]
  4. LASIX [Concomitant]

REACTIONS (1)
  - SUDDEN DEATH [None]
